FAERS Safety Report 11089949 (Version 3)
Quarter: 2015Q2

REPORT INFORMATION
  Report Type: Spontaneous
  Country: JP (occurrence: JP)
  Receive Date: 20150505
  Receipt Date: 20150617
  Transmission Date: 20150821
  Serious: Yes (Death)
  Sender: FDA-Public Use
  Company Number: JP-MALLINCKRODT-T201502299

PATIENT
  Age: 66 Year
  Sex: Male

DRUGS (31)
  1. METHADONE [Suspect]
     Active Substance: METHADONE HYDROCHLORIDE
     Dosage: 10 MG (20 MG DAILY DOSE)
     Route: 048
     Dates: start: 20150304, end: 20150310
  2. METHADONE [Suspect]
     Active Substance: METHADONE HYDROCHLORIDE
     Dosage: 10 MG (30 MG DAILY DOSE)
     Route: 048
     Dates: start: 20150311, end: 20150317
  3. METHADONE [Suspect]
     Active Substance: METHADONE HYDROCHLORIDE
     Dosage: 20 MG (60 MG DAILY DOSE)
     Route: 048
     Dates: start: 20150325, end: 20150331
  4. METHADONE [Suspect]
     Active Substance: METHADONE HYDROCHLORIDE
     Dosage: 30 MG (90 MG DAILY DOSE)
     Route: 048
     Dates: start: 20150401, end: 20150407
  5. PACLITAXEL. [Concomitant]
     Active Substance: PACLITAXEL
     Dosage: 170 MG
     Route: 051
     Dates: start: 20150324, end: 20150324
  6. RANITIDINE [Concomitant]
     Active Substance: RANITIDINE\RANITIDINE HYDROCHLORIDE
     Dosage: 50 MG
     Route: 051
     Dates: start: 20150317, end: 20150317
  7. OXINORM [Concomitant]
     Active Substance: OXYCODONE HYDROCHLORIDE
     Dosage: 5-10 MG PRN
     Route: 048
     Dates: start: 20150224
  8. MAGMITT [Concomitant]
     Active Substance: MAGNESIUM OXIDE
     Dosage: 990 MG
     Route: 048
     Dates: end: 20150411
  9. DEXART [Concomitant]
     Active Substance: DEXAMETHASONE SODIUM PHOSPHATE
     Dosage: 20 MG
     Route: 051
     Dates: start: 20150324, end: 20150324
  10. FUROSEMIDE. [Concomitant]
     Active Substance: FUROSEMIDE
     Dosage: 10 MG
     Route: 048
     Dates: end: 20150411
  11. CALONAL [Concomitant]
     Active Substance: ACETAMINOPHEN
     Dosage: 1600 MG
     Route: 048
     Dates: end: 20150411
  12. RANITIDINE [Concomitant]
     Active Substance: RANITIDINE\RANITIDINE HYDROCHLORIDE
     Dosage: 50 MG
     Route: 051
     Dates: start: 20150324, end: 20150324
  13. GRANISETRON [Concomitant]
     Active Substance: GRANISETRON
     Dosage: 1 MG
     Route: 051
     Dates: start: 20150317, end: 20150317
  14. NOVAMIN [Concomitant]
     Active Substance: PROCHLORPERAZINE MALEATE
     Dosage: 5 MG
     Route: 051
     Dates: start: 20150411, end: 20150414
  15. AMITIZA [Concomitant]
     Active Substance: LUBIPROSTONE
     Dosage: 48 MG
     Route: 048
     Dates: end: 20150327
  16. GEMCITABINE [Concomitant]
     Active Substance: GEMCITABINE\GEMCITABINE HYDROCHLORIDE
     Dosage: 1600 MG
     Route: 051
     Dates: start: 20150324, end: 20150324
  17. POLARAMINE [Concomitant]
     Active Substance: DEXCHLORPHENIRAMINE MALEATE
     Dosage: 5 MG
     Route: 051
     Dates: start: 20150317, end: 20150317
  18. POLARAMINE [Concomitant]
     Active Substance: DEXCHLORPHENIRAMINE MALEATE
     Dosage: 5 MG
     Route: 051
     Dates: start: 20150324, end: 20150324
  19. GRANISETRON [Concomitant]
     Active Substance: GRANISETRON
     Dosage: 1 MG
     Route: 051
     Dates: start: 20150324, end: 20150324
  20. METHADONE [Suspect]
     Active Substance: METHADONE HYDROCHLORIDE
     Dosage: 40 MG (120 MG DAILY DOSE)
     Route: 048
     Dates: start: 20150408, end: 20150411
  21. GEMCITABINE [Concomitant]
     Active Substance: GEMCITABINE\GEMCITABINE HYDROCHLORIDE
     Dosage: 1600 MG
     Route: 051
     Dates: start: 20150317, end: 20150317
  22. WARFARIN [Concomitant]
     Active Substance: WARFARIN
     Dosage: 2 MG
     Route: 048
     Dates: end: 20150411
  23. DEXART [Concomitant]
     Active Substance: DEXAMETHASONE SODIUM PHOSPHATE
     Dosage: 20 MG
     Route: 051
     Dates: start: 20150317, end: 20150317
  24. PACLITAXEL. [Concomitant]
     Active Substance: PACLITAXEL
     Dosage: 170 MG
     Route: 051
     Dates: start: 20150317, end: 20150317
  25. NU-LOTAN [Concomitant]
     Active Substance: LOSARTAN POTASSIUM
     Dosage: 25 MG
     Route: 048
     Dates: end: 20150411
  26. LANSOPRAZOLE. [Concomitant]
     Active Substance: LANSOPRAZOLE
     Dosage: 30 MG
     Route: 048
     Dates: end: 20150411
  27. ZOMETA [Concomitant]
     Active Substance: ZOLEDRONIC ACID
     Dosage: 2.5 MG
     Route: 051
     Dates: start: 20150311, end: 20150311
  28. INOVAN [Concomitant]
     Active Substance: DOPAMINE HYDROCHLORIDE
     Dosage: 300 MG
     Route: 051
     Dates: start: 20150411, end: 20150414
  29. METHADONE [Suspect]
     Active Substance: METHADONE HYDROCHLORIDE
     Indication: CANCER PAIN
     Dosage: 5 MG (15 MG DAILY DOSE)
     Route: 048
     Dates: start: 20150225, end: 20150303
  30. METHADONE [Suspect]
     Active Substance: METHADONE HYDROCHLORIDE
     Dosage: 15 MG (45 MG DAILY DOSE)
     Route: 048
     Dates: start: 20150318, end: 20150324
  31. ALDACTONE [Concomitant]
     Active Substance: SPIRONOLACTONE
     Dosage: 25 MG
     Route: 048
     Dates: end: 20150411

REACTIONS (5)
  - Urinary tract infection [Recovered/Resolved]
  - Bladder cancer [Fatal]
  - Leukopenia [Recovered/Resolved]
  - Constipation [Not Recovered/Not Resolved]
  - Insomnia [Not Recovered/Not Resolved]

NARRATIVE: CASE EVENT DATE: 20150327
